FAERS Safety Report 11337502 (Version 1)
Quarter: 2015Q3

REPORT INFORMATION
  Report Type: Spontaneous
  Country: US (occurrence: US)
  Receive Date: 20150803
  Receipt Date: 20150803
  Transmission Date: 20151125
  Serious: No
  Sender: FDA-Public Use
  Company Number: US-ELI_LILLY_AND_COMPANY-US200907003767

PATIENT
  Age: 22 Year
  Sex: Female

DRUGS (3)
  1. BUPROPION. [Concomitant]
     Active Substance: BUPROPION
  2. ATIVAN [Concomitant]
     Active Substance: LORAZEPAM
  3. ZYPREXA [Suspect]
     Active Substance: OLANZAPINE
     Dosage: 35 MG, UNK
     Dates: start: 200812, end: 20090630

REACTIONS (3)
  - Blood prolactin increased [Unknown]
  - Prescribed overdose [Unknown]
  - Weight increased [Unknown]

NARRATIVE: CASE EVENT DATE: 200812
